FAERS Safety Report 18499783 (Version 6)
Quarter: 2020Q4

REPORT INFORMATION
  Report Type: Spontaneous
  Country: CA (occurrence: CA)
  Receive Date: 20201112
  Receipt Date: 20201225
  Transmission Date: 20210114
  Serious: Yes (Other)
  Sender: FDA-Public Use
  Company Number: CA-CELLTRION INC.-2019CA022780

PATIENT

DRUGS (13)
  1. INFLECTRA [Suspect]
     Active Substance: INFLIXIMAB-DYYB
     Dosage: 538 MG, EVERY 8 WEEKS
     Route: 042
     Dates: start: 20191211
  2. PREDNISONE. [Concomitant]
     Active Substance: PREDNISONE
     Dosage: TAPERING
  3. INFLECTRA [Suspect]
     Active Substance: INFLIXIMAB-DYYB
     Dosage: 10 MG/KG (535 MG), EVERY 8 WEEKS
     Route: 042
     Dates: start: 20191017
  4. INFLECTRA [Suspect]
     Active Substance: INFLIXIMAB-DYYB
     Indication: CROHN^S DISEASE
     Dosage: 5 MG/KG, EVERY 0, 2, 6 WEEKS, THEN EVERY 8 WEEKS
     Route: 042
     Dates: start: 20190306, end: 20190501
  5. INFLECTRA [Suspect]
     Active Substance: INFLIXIMAB-DYYB
     Dosage: 10 MG/KG (530 MG), EVERY 8 WEEKS
     Route: 042
     Dates: start: 20190625
  6. INFLECTRA [Suspect]
     Active Substance: INFLIXIMAB-DYYB
     Dosage: 546 MG, EVERY 8 WEEKS
     Route: 042
     Dates: start: 20200521
  7. INFLECTRA [Suspect]
     Active Substance: INFLIXIMAB-DYYB
     Dosage: 530 MG, EVERY 8 WEEKS
     Route: 042
     Dates: start: 20201105
  8. INFLECTRA [Suspect]
     Active Substance: INFLIXIMAB-DYYB
     Dosage: 10 MG/KG, EVERY 4 WEEKS
     Route: 042
     Dates: start: 20201211
  9. 6-MP [Concomitant]
     Active Substance: MERCAPTOPURINE
     Dosage: 50 MG, DAILY
  10. INFLECTRA [Suspect]
     Active Substance: INFLIXIMAB-DYYB
     Dosage: 530 MG, EVERY 8 WEEKS
     Route: 042
     Dates: start: 20200911
  11. VITAMIN B12 [Concomitant]
     Active Substance: CYANOCOBALAMIN
     Dosage: 1000 UG
     Route: 030
     Dates: start: 20200205, end: 20200205
  12. INFLECTRA [Suspect]
     Active Substance: INFLIXIMAB-DYYB
     Dosage: 542 MG, EVERY 8 WEEKS
     Route: 042
     Dates: start: 20200401
  13. INFLECTRA [Suspect]
     Active Substance: INFLIXIMAB-DYYB
     Dosage: 542 MG, EVERY 8 WEEKS
     Route: 042
     Dates: start: 20200205

REACTIONS (5)
  - Inappropriate schedule of product administration [Unknown]
  - Ileal ulcer [Unknown]
  - Therapeutic response shortened [Unknown]
  - Off label use [Unknown]
  - Ankle fracture [Unknown]

NARRATIVE: CASE EVENT DATE: 20201101
